FAERS Safety Report 7498544-1 (Version None)
Quarter: 2011Q2

REPORT INFORMATION
  Report Type: 
  Country: None (occurrence: None)
  Receive Date: 20110524
  Receipt Date: 20100124
  Transmission Date: 20111010
  Serious: Yes (Other)
  Sender: FDA-Public Use
  Company Number: US-BAYER-201012060NA

PATIENT
  Age: 52 Year
  Sex: Male
  Weight: 119.73 kg

DRUGS (24)
  1. PEPCID [Concomitant]
     Dosage: 20 MG, UNK
     Route: 042
     Dates: start: 20031113
  2. EPINEPHRINE [Concomitant]
     Dosage: UNK
     Route: 042
     Dates: start: 20031113
  3. LEVOPHED [Concomitant]
     Dosage: UNK
     Route: 042
     Dates: start: 20031113
  4. BENADRYL [Concomitant]
     Dosage: 50 MG, UNK
     Route: 042
     Dates: start: 20031113
  5. NITROGLYCERIN [Concomitant]
     Dosage: UNK
     Route: 042
     Dates: start: 20031113
  6. TRASYLOL [Suspect]
     Indication: CORONARY ARTERY BYPASS
     Dosage: 100 ML, ONCE (LOADING)
     Route: 042
     Dates: start: 20031113, end: 20031113
  7. ACETYLSALICYLIC ACID SRT [Concomitant]
     Dosage: 325 MG, UNK
     Route: 048
  8. PROTAMINE SULFATE [Concomitant]
     Dosage: 500 MG, UNK
     Route: 042
     Dates: start: 20031113
  9. ISOFLURANE [Concomitant]
     Dosage: UNK, INHALED
     Route: 055
     Dates: start: 20031113
  10. PAVULON [Concomitant]
     Dosage: UNK
     Route: 042
     Dates: start: 20031113
  11. PRIMACOR [Concomitant]
     Route: 042
  12. FENTANYL [Concomitant]
     Dosage: 1000 MCG
     Route: 042
     Dates: start: 20031113
  13. VERSED [Concomitant]
     Dosage: 5 MG, UNK
     Route: 042
     Dates: start: 20031113
  14. PROPOFOL [Concomitant]
     Dosage: 200 MG, UNK
     Route: 042
     Dates: start: 20031113
  15. DECADRON [Concomitant]
     Dosage: 100 MG, UNK
     Route: 042
     Dates: start: 20031113
  16. LASIX [Concomitant]
     Dosage: 200 MG, UNK
     Route: 042
     Dates: start: 20031113
  17. DIURIL [Concomitant]
     Dosage: 1000 MG, UNK
     Route: 042
     Dates: start: 20031113
  18. ROCEPHIN [Concomitant]
     Dosage: 1 G, UNK
     Route: 042
     Dates: start: 20031113
  19. VANCOMYCIN [Concomitant]
     Dosage: 1 G, UNK
     Route: 042
     Dates: start: 20031113
  20. CALCIUM CHLORIDE [Concomitant]
     Dosage: UNK
     Route: 042
     Dates: start: 20031113
  21. ATENOLOL [Concomitant]
     Route: 048
  22. TRASYLOL [Suspect]
     Dosage: 50 ML/HR (INFUSION)
     Route: 042
     Dates: start: 20031113, end: 20031113
  23. MAGNESIUM SULFATE [Concomitant]
     Dosage: UNK
     Route: 042
     Dates: start: 20031113
  24. BUMEX [Concomitant]
     Dosage: 10 MG, UNK
     Route: 042
     Dates: start: 20031113

REACTIONS (13)
  - STRESS [None]
  - ANXIETY [None]
  - UNEVALUABLE EVENT [None]
  - RENAL FAILURE [None]
  - RENAL IMPAIRMENT [None]
  - MULTI-ORGAN FAILURE [None]
  - PAIN [None]
  - INJURY [None]
  - FEAR [None]
  - ANHEDONIA [None]
  - DEPRESSION [None]
  - RENAL INJURY [None]
  - EMOTIONAL DISTRESS [None]
